FAERS Safety Report 9017582 (Version 3)
Quarter: 2013Q2

REPORT INFORMATION
  Report Type: Spontaneous
  Country: US (occurrence: US)
  Receive Date: 20130117
  Receipt Date: 20130506
  Transmission Date: 20140414
  Serious: No
  Sender: FDA-Public Use
  Company Number: US-009507513-1301USA006258

PATIENT
  Age: 73 Year
  Sex: Female
  Weight: 83.9 kg

DRUGS (5)
  1. JANUVIA [Suspect]
     Indication: TYPE 2 DIABETES MELLITUS
     Dosage: 50 MG, QD
     Route: 048
     Dates: start: 201211, end: 20130111
  2. XARELTO [Suspect]
     Indication: ATRIAL FIBRILLATION
     Dosage: 10 MG, QD
     Route: 048
     Dates: start: 201210, end: 20130109
  3. TIKOSYN [Concomitant]
     Dosage: 0.125 MG, QD
     Route: 048
     Dates: start: 201210
  4. GLYBURIDE [Concomitant]
     Dosage: 6 MG, QD
     Route: 048
     Dates: end: 201211
  5. GLYBURIDE [Concomitant]
     Dosage: 3 MG, QD
     Route: 048
     Dates: start: 201211

REACTIONS (2)
  - Rash pruritic [Not Recovered/Not Resolved]
  - Blood glucose decreased [Recovered/Resolved]
